FAERS Safety Report 25203295 (Version 1)
Quarter: 2025Q2

REPORT INFORMATION
  Report Type: Spontaneous
  Country: US (occurrence: None)
  Receive Date: 20250415
  Receipt Date: 20250415
  Transmission Date: 20250716
  Serious: Yes (unspecified)
  Sender: FDA-CTU
  Company Number: None

PATIENT
  Age: 83 Year
  Sex: Female
  Weight: 55.35 kg

DRUGS (8)
  1. XDEMVY [Suspect]
     Active Substance: LOTILANER
     Indication: Blepharitis
     Dosage: OTHER STRENGTH : .25%;?OTHER QUANTITY : 10 DROP(S);?FREQUENCY : TWICE A DAY;?
     Route: 047
     Dates: start: 20250410, end: 20250414
  2. AMLODIPINE [Concomitant]
     Active Substance: AMLODIPINE BESYLATE
  3. WIXELA INHUB [Concomitant]
     Active Substance: FLUTICASONE PROPIONATE\SALMETEROL XINAFOATE
  4. VITAMIN A [Concomitant]
     Active Substance: VITAMIN A
  5. VITAMIN B [Concomitant]
     Active Substance: VITAMIN B
  6. VITAMIN C [Concomitant]
     Active Substance: ASCORBIC ACID
  7. VITAMIN D [Concomitant]
     Active Substance: VITAMIN D NOS
  8. VITAMIN E [Concomitant]
     Active Substance: .ALPHA.-TOCOPHEROL

REACTIONS (7)
  - Eye pain [None]
  - Eye irritation [None]
  - Eye swelling [None]
  - Ocular hyperaemia [None]
  - Eye pruritus [None]
  - Vision blurred [None]
  - Lacrimation increased [None]

NARRATIVE: CASE EVENT DATE: 20250410
